FAERS Safety Report 9308357 (Version 2)
Quarter: 2013Q3

REPORT INFORMATION
  Report Type: Spontaneous
  Country: JP (occurrence: JP)
  Receive Date: 20130524
  Receipt Date: 20130710
  Transmission Date: 20140515
  Serious: Yes (Other)
  Sender: FDA-Public Use
  Company Number: JP-GLAXOSMITHKLINE-B0892917A

PATIENT
  Age: 69 Year
  Sex: Female

DRUGS (11)
  1. PAXIL [Suspect]
     Indication: PRODUCT USED FOR UNKNOWN INDICATION
     Route: 048
     Dates: end: 20130409
  2. BI SIFROL [Concomitant]
     Indication: PARKINSON^S DISEASE
     Route: 048
     Dates: end: 20130408
  3. COMTAN [Concomitant]
     Route: 048
     Dates: end: 20130408
  4. MENESIT [Concomitant]
     Route: 048
     Dates: end: 20130408
  5. TRERIEF [Concomitant]
     Route: 048
     Dates: end: 20130408
  6. MADOPAR [Concomitant]
     Indication: PARKINSON^S DISEASE
     Dosage: .5IUAX FOUR TIMES PER DAY
     Route: 048
     Dates: start: 20130409
  7. NEUPRO [Concomitant]
     Indication: PARKINSON^S DISEASE
     Dosage: 9MG PER DAY
     Route: 062
     Dates: start: 20130409, end: 20130416
  8. FP-OD [Concomitant]
     Indication: PARKINSON^S DISEASE
     Dosage: 2.5MG PER DAY
     Route: 048
     Dates: start: 20130417, end: 20130417
  9. REQUIP [Concomitant]
     Indication: PARKINSON^S DISEASE
     Dosage: 2MG PER DAY
     Route: 048
     Dates: start: 20130416
  10. DEPAS [Concomitant]
     Route: 048
  11. RINDERON [Concomitant]
     Route: 061
     Dates: start: 20130412

REACTIONS (5)
  - Serotonin syndrome [Recovered/Resolved]
  - Dermatitis contact [Unknown]
  - Feeling abnormal [Unknown]
  - Musculoskeletal stiffness [Unknown]
  - Daydreaming [Unknown]
